FAERS Safety Report 19110804 (Version 4)
Quarter: 2021Q3

REPORT INFORMATION
  Report Type: Report from Study
  Country: US (occurrence: US)
  Receive Date: 20210408
  Receipt Date: 20210806
  Transmission Date: 20211014
  Serious: Yes (Other)
  Sender: FDA-Public Use
  Company Number: US-BIOVITRUM-2021US3457

PATIENT
  Age: 61 Year
  Sex: Female

DRUGS (2)
  1. KINERET [Suspect]
     Active Substance: ANAKINRA
     Indication: PERICARDITIS
     Route: 058
     Dates: start: 20200917
  2. KINERET [Suspect]
     Active Substance: ANAKINRA
     Route: 058
     Dates: start: 202009

REACTIONS (6)
  - COVID-19 [Unknown]
  - Decreased activity [Unknown]
  - Product dose omission issue [Unknown]
  - Off label use [Not Recovered/Not Resolved]
  - Arthralgia [Unknown]
  - Malaise [Unknown]

NARRATIVE: CASE EVENT DATE: 20200917
